APPROVED DRUG PRODUCT: ESOMEPRAZOLE MAGNESIUM
Active Ingredient: ESOMEPRAZOLE MAGNESIUM
Strength: EQ 20MG BASE
Dosage Form/Route: CAPSULE, DELAYED RELEASE;ORAL
Application: A209716 | Product #001
Applicant: AMNEAL PHARMACEUTICALS OF NY LLC
Approved: Jun 5, 2019 | RLD: No | RS: No | Type: DISCN